FAERS Safety Report 9498206 (Version 2)
Quarter: 2013Q4

REPORT INFORMATION
  Report Type: Spontaneous
  Country: US (occurrence: US)
  Receive Date: 20130904
  Receipt Date: 20131121
  Transmission Date: 20140711
  Serious: Yes (Other)
  Sender: FDA-Public Use
  Company Number: US-BAYER-2013-105739

PATIENT
  Age: 28 Year
  Sex: Female
  Weight: 77.1 kg

DRUGS (4)
  1. MIRENA [Suspect]
     Dosage: 20 MCG/24HR, CONT
     Route: 015
     Dates: start: 201210, end: 20130708
  2. VICODIN [Concomitant]
  3. CYTOTEC [Concomitant]
  4. IBUPROFEN [Concomitant]

REACTIONS (8)
  - Uterine perforation [None]
  - Device breakage [None]
  - Genital haemorrhage [None]
  - Injury [None]
  - Emotional distress [None]
  - Scar [None]
  - Abdominal pain lower [None]
  - Polymenorrhoea [None]
